FAERS Safety Report 4681139-2 (Version None)
Quarter: 2005Q2

REPORT INFORMATION
  Report Type: 
  Country: None (occurrence: None)
  Receive Date: 20050603
  Receipt Date: 20050524
  Transmission Date: 20051028
  Serious: Yes (Other)
  Sender: FDA-Public Use
  Company Number: US-MERCK-0505USA02829

PATIENT
  Age: 48 Year
  Sex: Female
  Weight: 68 kg

DRUGS (8)
  1. VYTORIN [Suspect]
     Indication: BLOOD CHOLESTEROL INCREASED
     Route: 048
     Dates: start: 20050401, end: 20050401
  2. VYTORIN [Suspect]
     Indication: LOW DENSITY LIPOPROTEIN INCREASED
     Route: 048
     Dates: start: 20050401, end: 20050401
  3. PROVENTIL [Concomitant]
     Indication: ASTHMA
     Route: 065
  4. ZANAFLEX [Concomitant]
     Indication: BACK PAIN
     Route: 065
  5. DURAGESIC-100 [Concomitant]
     Indication: BACK PAIN
     Route: 065
  6. EFFEXOR XR [Concomitant]
     Indication: DEPRESSION
     Route: 065
  7. CODEINE [Concomitant]
     Indication: ARTHRITIS
     Route: 065
  8. [THERAPY UNSPECIFIED] [Concomitant]
     Indication: BLOOD PRESSURE ABNORMAL
     Route: 065

REACTIONS (4)
  - CHEST PAIN [None]
  - DIZZINESS [None]
  - DYSPNOEA [None]
  - PAIN IN EXTREMITY [None]
